FAERS Safety Report 6730714-X (Version None)
Quarter: 2010Q2

REPORT INFORMATION
  Report Type: 
  Country: None (occurrence: None)
  Receive Date: 20100518
  Receipt Date: 20100503
  Transmission Date: 20101027
  Serious: Yes (Life-Threatening, Hospitalization, Other)
  Sender: FDA-Public Use
  Company Number: US-BAYER-201021271NA

PATIENT
  Age: 38 Year
  Sex: Female
  Weight: 73 kg

DRUGS (10)
  1. YASMIN [Suspect]
     Indication: ORAL CONTRACEPTION
     Route: 048
     Dates: start: 20070301, end: 20090301
  2. ASPIRIN [Concomitant]
     Indication: ANTICOAGULANT THERAPY
     Dates: start: 20090301
  3. SIMVASTATIN [Concomitant]
     Indication: BLOOD CHOLESTEROL INCREASED
     Dates: start: 20060301
  4. BROMOCRIPTINE MESYLATE [Concomitant]
     Indication: HYPOTHALAMO-PITUITARY DISORDER
     Dates: start: 20060101
  5. MORPHINE [Concomitant]
     Route: 042
  6. TYLENOL W/ CODEINE NO. 3 [Concomitant]
  7. ACETAMINOPHEN [Concomitant]
  8. DILAUDID [Concomitant]
     Dosage: 1MG /0.5ML
     Route: 042
     Dates: start: 20090303
  9. ZOFRAN [Concomitant]
     Route: 042
  10. ORTHO-NOVUM 7/7/7-21 [Concomitant]
     Indication: CONTRACEPTION

REACTIONS (11)
  - ASTHENIA [None]
  - DYSARTHRIA [None]
  - FACIAL PALSY [None]
  - FACIAL PARESIS [None]
  - FALL [None]
  - HEMIPARESIS [None]
  - ISCHAEMIC STROKE [None]
  - NAUSEA [None]
  - PITUITARY TUMOUR [None]
  - THROMBOSIS [None]
  - VOMITING [None]
